FAERS Safety Report 24728564 (Version 4)
Quarter: 2025Q1

REPORT INFORMATION
  Report Type: Spontaneous
  Country: CA (occurrence: CA)
  Receive Date: 20241212
  Receipt Date: 20250109
  Transmission Date: 20250409
  Serious: Yes (Other)
  Sender: BAUSCH AND LOMB
  Company Number: CA-BAUSCHBL-2024BNL038439

PATIENT
  Age: 74 Year
  Sex: Male
  Weight: 77.11 kg

DRUGS (3)
  1. VYZULTA [Suspect]
     Active Substance: LATANOPROSTENE BUNOD
     Indication: Glaucoma
     Dosage: (1-2 DROPS NIGHTLY IN EACH EYE) 4-5 YEARS AGO/ 2-3 YEARS BACK
     Route: 047
  2. VYZULTA [Suspect]
     Active Substance: LATANOPROSTENE BUNOD
     Dosage: (1-2 DROPS NIGHTLY IN EACH EYE), DISPOSED LEAKING BOTTLES
     Route: 047
  3. CARBOXYMETHYLCELLULOSE [Concomitant]
     Active Substance: CARBOXYMETHYLCELLULOSE
     Indication: Product used for unknown indication
     Route: 065

REACTIONS (7)
  - Eye operation [Unknown]
  - Product container issue [Unknown]
  - Product delivery mechanism issue [Unknown]
  - Product complaint [Unknown]
  - Circumstance or information capable of leading to medication error [Unknown]
  - Exposure via skin contact [Unknown]
  - Accidental exposure to product [Unknown]
